FAERS Safety Report 23543517 (Version 9)
Quarter: 2025Q1

REPORT INFORMATION
  Report Type: Spontaneous
  Country: US (occurrence: US)
  Receive Date: 20240220
  Receipt Date: 20250325
  Transmission Date: 20250408
  Serious: Yes (Other)
  Sender: HIKMA
  Company Number: US-HIKMA PHARMACEUTICALS USA INC.-US-H14001-24-01185

PATIENT
  Age: 61 Year
  Sex: Male
  Weight: 51.3 kg

DRUGS (9)
  1. TESTOSTERONE CYPIONATE [Suspect]
     Active Substance: TESTOSTERONE CYPIONATE
     Indication: Blood testosterone decreased
     Dosage: 350 MILLIGRAM, WEEKLY
     Route: 065
  2. TESTOSTERONE ENANTHATE [Suspect]
     Active Substance: TESTOSTERONE ENANTHATE
     Route: 065
  3. TESTOSTERONE ENANTHATE [Suspect]
     Active Substance: TESTOSTERONE ENANTHATE
     Route: 065
  4. TESTOSTERONE ENANTHATE [Suspect]
     Active Substance: TESTOSTERONE ENANTHATE
     Indication: Blood testosterone decreased
     Route: 065
  5. TESTOSTERONE ENANTHATE [Suspect]
     Active Substance: TESTOSTERONE ENANTHATE
     Route: 065
  6. BETA SITOSTEROL [Concomitant]
     Indication: Blood cholesterol increased
  7. BETA SITOSTEROL [Concomitant]
     Indication: Benign prostatic hyperplasia
  8. NORCO [Concomitant]
     Active Substance: ACETAMINOPHEN\HYDROCODONE BITARTRATE
     Indication: Product used for unknown indication
     Route: 065
  9. HERBALS\SPIRULINA [Concomitant]
     Active Substance: HERBALS\SPIRULINA
     Indication: Pain

REACTIONS (22)
  - Rheumatoid arthritis [Unknown]
  - Suicidal ideation [Unknown]
  - Poisoning [Unknown]
  - Elbow deformity [Unknown]
  - Infection [Unknown]
  - Adverse event [Unknown]
  - Memory impairment [Unknown]
  - Drug interaction [Unknown]
  - Pain [Unknown]
  - Systemic immune activation [Unknown]
  - Ejaculation disorder [Unknown]
  - Cerebral disorder [Unknown]
  - Therapeutic response unexpected [Unknown]
  - Treatment noncompliance [Unknown]
  - Drug ineffective [Unknown]
  - Product dose omission issue [Unknown]
  - Incorrect dose administered [Unknown]
  - Product prescribing issue [Unknown]
  - Vertigo [Unknown]
  - Amnesia [Unknown]
  - Drug dependence [Unknown]
  - Drug abuse [Unknown]
